FAERS Safety Report 11120173 (Version 1)
Quarter: 2015Q2

REPORT INFORMATION
  Report Type: Report from Study
  Country: CA (occurrence: CA)
  Receive Date: 20150518
  Receipt Date: 20150518
  Transmission Date: 20150821
  Serious: Yes (Death)
  Sender: FDA-Public Use
  Company Number: PHHY2015CA035980

PATIENT
  Age: 79 Year
  Sex: Female

DRUGS (2)
  1. SANDOSTATIN LAR DEPOT [Suspect]
     Active Substance: OCTREOTIDE ACETATE
     Indication: OVARIAN NEOPLASM
     Dosage: 20 MG, QMO
     Route: 030
     Dates: start: 20150319, end: 20150421
  2. SANDOSTATIN [Suspect]
     Active Substance: OCTREOTIDE ACETATE
     Indication: OVARIAN NEOPLASM
     Dosage: 100 UG, BID
     Route: 058
     Dates: start: 20150313

REACTIONS (9)
  - Off label use [Unknown]
  - Abdominal pain upper [Unknown]
  - Death [Fatal]
  - Anxiety [Unknown]
  - Asthenia [Unknown]
  - Abdominal discomfort [Unknown]
  - Crying [Unknown]
  - Body temperature decreased [Unknown]
  - Malaise [Unknown]

NARRATIVE: CASE EVENT DATE: 20150319
